FAERS Safety Report 5781283-2 (Version None)
Quarter: 2008Q2

REPORT INFORMATION
  Report Type: 
  Country: None (occurrence: None)
  Receive Date: 20080623
  Receipt Date: 20080501
  Transmission Date: 20081010
  Serious: No
  Sender: FDA-Public Use
  Company Number: US-BAYER-200822463NA

PATIENT
  Age: 64 Year
  Sex: Female
  Weight: 77 kg

DRUGS (5)
  1. ANGELIQ [Suspect]
     Indication: HOT FLUSH
     Route: 048
     Dates: start: 20080320
  2. LIPITOR [Concomitant]
  3. LEVOXYL [Concomitant]
  4. XANAX [Concomitant]
  5. DAYPRO [Concomitant]

REACTIONS (3)
  - BREAST ENGORGEMENT [None]
  - BREAST PAIN [None]
  - GENITAL HAEMORRHAGE [None]
